FAERS Safety Report 8101243-6 (Version None)
Quarter: 2012Q1

REPORT INFORMATION
  Report Type: 
  Country: None (occurrence: None)
  Receive Date: 20120129
  Receipt Date: 20110919
  Transmission Date: 20120608
  Serious: No
  Sender: FDA-Public Use
  Company Number: US-ABBOTT-11P-163-0856226-00

PATIENT
  Age: 53 Year
  Sex: Male

DRUGS (20)
  1. LAMOTRIGINE [Concomitant]
     Indication: BIPOLAR DISORDER
     Route: 048
  2. POTASSIUM [Concomitant]
     Indication: ELECTROLYTE SUBSTITUTION THERAPY
     Route: 048
  3. SEROQUEL [Concomitant]
     Indication: BIPOLAR DISORDER
     Dosage: SR
     Dates: start: 20110601
  4. DEPAKOTE [Concomitant]
     Indication: BIPOLAR DISORDER
     Route: 048
  5. METHOTREXATE [Concomitant]
     Indication: PSORIASIS
     Dosage: 2.5 MG - 10 TABLETS EVERY WEEK
     Route: 048
  6. DILTIAZEM [Concomitant]
     Indication: ATRIAL FIBRILLATION
     Route: 048
  7. HUMIRA [Suspect]
     Indication: PSORIASIS
     Dates: start: 20110601
  8. KLONOPIN [Concomitant]
     Indication: BIPOLAR DISORDER
     Route: 048
  9. ACETAMINOPHEN [Concomitant]
     Indication: PAIN
     Dosage: TWO AS NEEDED
     Route: 048
  10. ACETAMINOPHEN [Concomitant]
  11. FOLIC ACID [Concomitant]
     Indication: VITAMIN SUPPLEMENTATION
     Route: 048
  12. OLUX [Concomitant]
     Indication: PRODUCT USED FOR UNKNOWN INDICATION
     Dosage: APPLIES TO AFFECTED AREA
  13. LEVOTHYROXINE SODIUM [Concomitant]
     Indication: BLOOD DISORDER
     Route: 048
  14. FUROSEMIDE [Concomitant]
     Indication: OEDEMA PERIPHERAL
     Route: 048
  15. ACETAMINOPHEN PM [Concomitant]
     Indication: INSOMNIA
     Dosage: ONE AS NEEDED FOR SLEEP
  16. FISH OIL [Concomitant]
     Indication: BLOOD CHOLESTEROL
     Route: 048
  17. WARFARIN SODIUM [Concomitant]
     Indication: PRODUCT USED FOR UNKNOWN INDICATION
     Route: 048
  18. METFORMIN HCL [Concomitant]
     Indication: TYPE 2 DIABETES MELLITUS
     Route: 048
  19. PRAVASTATIN [Concomitant]
     Indication: BLOOD CHOLESTEROL
     Route: 048
  20. CENTRUM SENIOR [Concomitant]
     Indication: VITAMIN SUPPLEMENTATION
     Route: 048

REACTIONS (1)
  - ARTHRALGIA [None]
